FAERS Safety Report 18463134 (Version 2)
Quarter: 2020Q4

REPORT INFORMATION
  Report Type: Spontaneous
  Country: US (occurrence: US)
  Receive Date: 20201104
  Receipt Date: 20201113
  Transmission Date: 20210114
  Serious: Yes (Other)
  Sender: FDA-Public Use
  Company Number: US-PFIZER INC-2020425566

PATIENT
  Age: 71 Year
  Sex: Female
  Weight: 79.59 kg

DRUGS (19)
  1. METOPROLOL SUCCINATE. [Concomitant]
     Active Substance: METOPROLOL SUCCINATE
     Dosage: 50 MG, 1X/DAY,QAM(EVERY DAY BEFORE NOON)
     Route: 048
  2. LANTUS [Concomitant]
     Active Substance: INSULIN GLARGINE
     Dosage: 10 IU, 1X/DAY,QHS(EVERY NIGHT AT BEDTIME)
     Route: 058
  3. LEVOBUNOLOL HCL [Concomitant]
     Active Substance: LEVOBUNOLOL HYDROCHLORIDE
     Dosage: UNK, 2X/DAY [1 GTT OU BID]
  4. AZTREONAM. [Concomitant]
     Active Substance: AZTREONAM
     Dosage: 1 G (Q8H)
     Route: 042
  5. LEVAQUIN [Suspect]
     Active Substance: LEVOFLOXACIN
     Indication: CHOLECYSTITIS ACUTE
     Dosage: 500 MG, 1X/DAY
     Dates: start: 20090701, end: 20090706
  6. PANTOPRAZOLE [Concomitant]
     Active Substance: PANTOPRAZOLE
     Dosage: 40 MG, 1X/DAY
     Route: 048
  7. RAMIPRIL. [Concomitant]
     Active Substance: RAMIPRIL
     Dosage: 5 MG, DAILY
     Route: 048
  8. MIDAZOLAM. [Concomitant]
     Active Substance: MIDAZOLAM
     Dosage: 2 MG, AS NEEDED 2 MG, Q4H(EVERY 4 HOURS), PRN(AS NEEDED)
     Route: 042
  9. METRONIDAZOLE. [Suspect]
     Active Substance: METRONIDAZOLE
     Indication: CHOLECYSTITIS ACUTE
     Dosage: 500 MG, 3X/DAY [Q(DAILY) 8H]
     Route: 040
     Dates: start: 20090701, end: 20090708
  10. ASPIRIN [ACETYLSALICYLIC ACID] [Concomitant]
     Active Substance: ASPIRIN
     Dosage: 81 MG, DAILY
     Route: 048
  11. MORPHINE SULFATE. [Concomitant]
     Active Substance: MORPHINE SULFATE
     Dosage: UNK, AS NEEDED (1-2 MG Q3H(EVERY 3 HOURS), PRN (AS NEEDED)
     Route: 042
  12. DIVALPROEX SODIUM. [Concomitant]
     Active Substance: DIVALPROEX SODIUM
     Dosage: 500 MG, 1X/DAY,QHS(EVERY NIGHT AT BEDTIME)
     Route: 048
  13. NITROGLYCERIN. [Concomitant]
     Active Substance: NITROGLYCERIN
     Dosage: 2IN (EVERY 6 HOURS)
     Route: 061
  14. HUMALOG [Concomitant]
     Active Substance: INSULIN LISPRO
     Dosage: UNK
  15. ACETAMINOPHEN. [Concomitant]
     Active Substance: ACETAMINOPHEN
     Dosage: 650 MG, Q8H (EVERY 8 HOURS), PRN( AS NEEDED)
     Route: 048
  16. HEPARIN [Concomitant]
     Active Substance: HEPARIN SODIUM
     Dosage: 25000 IU, 1X/DAY,Q24H(EVERY 24 HOURS)
     Route: 042
  17. FUROSEMIDE. [Concomitant]
     Active Substance: FUROSEMIDE
     Dosage: 20 MG, 1X/DAY,QAM (EVERY DAY BEFORE NOON)
     Route: 048
  18. SIMVASTATIN. [Concomitant]
     Active Substance: SIMVASTATIN
     Dosage: 80 MG, 1X/DAY,QPM(EVERY EVENING)
     Route: 048
  19. METHYLPREDNISOLONE. [Concomitant]
     Active Substance: METHYLPREDNISOLONE
     Dosage: 20 MG, Q8H (EVERY 8 HOURS)
     Route: 042

REACTIONS (2)
  - Electrocardiogram QT prolonged [Unknown]
  - Bradyarrhythmia [Unknown]
